FAERS Safety Report 17493346 (Version 1)
Quarter: 2020Q1

REPORT INFORMATION
  Report Type: Spontaneous
  Country: US (occurrence: US)
  Receive Date: 20200221
  Receipt Date: 20200221
  Transmission Date: 20200409
  Serious: Yes (Hospitalization)
  Sender: FDA-Public Use
  Company Number: None

PATIENT
  Age: 52 Year
  Sex: Female

DRUGS (3)
  1. VERZENIO [Suspect]
     Active Substance: ABEMACICLIB
     Indication: BREAST CANCER METASTATIC
  2. LETROZOLE. [Concomitant]
     Active Substance: LETROZOLE
  3. VERZENIO [Suspect]
     Active Substance: ABEMACICLIB
     Indication: METASTASES TO LIVER

REACTIONS (2)
  - Diarrhoea [None]
  - Neoplasm malignant [None]

NARRATIVE: CASE EVENT DATE: 20200217
